FAERS Safety Report 9586643 (Version 2)
Quarter: 2013Q4

REPORT INFORMATION
  Report Type: Spontaneous
  Country: PE (occurrence: PE)
  Receive Date: 20131003
  Receipt Date: 20131015
  Transmission Date: 20140711
  Serious: Yes (Death)
  Sender: FDA-Public Use
  Company Number: PE-PFIZER INC-2013283526

PATIENT
  Age: 79 Year
  Sex: Male

DRUGS (1)
  1. NORVASTOR [Suspect]
     Indication: HYPERTENSION
     Dosage: [AMLODIPINE BESILATE 5MG]/[ ATORVASTATIN CALCIUM 10MG]
     Route: 048

REACTIONS (1)
  - Death [Fatal]
